FAERS Safety Report 9067405 (Version 1)
Quarter: 2013Q1

REPORT INFORMATION
  Report Type: Report from Study
  Country: US (occurrence: US)
  Receive Date: 20130214
  Receipt Date: 20130214
  Transmission Date: 20140127
  Serious: Yes (Hospitalization)
  Sender: FDA-Public Use
  Company Number: US-ABBOTT-13P-163-1045581-00

PATIENT
  Sex: Male
  Weight: 62.65 kg

DRUGS (2)
  1. HUMIRA [Suspect]
     Indication: CROHN^S DISEASE
     Route: 058
     Dates: end: 201204
  2. HUMIRA [Suspect]
     Route: 058
     Dates: start: 201301

REACTIONS (3)
  - Small intestinal obstruction [Recovered/Resolved]
  - Abdominal mass [Recovered/Resolved]
  - Ileostomy [Recovered/Resolved]
